FAERS Safety Report 9843322 (Version 1)
Quarter: 2013Q4

REPORT INFORMATION
  Report Type: Spontaneous
  Country: US (occurrence: None)
  Receive Date: 20131223
  Receipt Date: 20131223
  Transmission Date: 20140711
  Serious: No
  Sender: FDA-Public Use
  Company Number: 218779LEO

PATIENT
  Sex: 0

DRUGS (1)
  1. PICATO [Suspect]
     Indication: DRY SKIN
     Route: 061
     Dates: start: 201204, end: 201204

REACTIONS (1)
  - Drug ineffective [None]
